FAERS Safety Report 6126638-1 (Version None)
Quarter: 2009Q1

REPORT INFORMATION
  Report Type: 
  Country: None (occurrence: None)
  Receive Date: 20090320
  Receipt Date: 20090311
  Transmission Date: 20090719
  Serious: Yes (Hospitalization)
  Sender: FDA-Public Use
  Company Number: LV-AVENTIS-200819788GDDC

PATIENT
  Age: 59 Year
  Sex: Female
  Weight: 57 kg

DRUGS (4)
  1. AMARYL [Suspect]
     Indication: TYPE 2 DIABETES MELLITUS
     Route: 048
     Dates: start: 20020101
  2. ORAL ANTIDIABETICS [Suspect]
     Indication: TYPE 2 DIABETES MELLITUS
     Route: 048
     Dates: start: 20080402, end: 20080926
  3. METFORAL [Suspect]
     Indication: TYPE 2 DIABETES MELLITUS
     Route: 048
     Dates: start: 20000101
  4. AMITRIPTYLINE HCL [Concomitant]
     Route: 048

REACTIONS (2)
  - NEOPLASM MALIGNANT [None]
  - PANCREATITIS [None]
